FAERS Safety Report 8219062-9 (Version None)
Quarter: 2012Q1

REPORT INFORMATION
  Report Type: 
  Country: None (occurrence: None)
  Receive Date: 20120319
  Receipt Date: 20120309
  Transmission Date: 20120608
  Serious: Yes (Congenital Anomaly)
  Sender: FDA-Public Use
  Company Number: ZA-BRISTOL-MYERS SQUIBB COMPANY-16452740

PATIENT

DRUGS (2)
  1. PROZAC [Suspect]
     Route: 064
  2. ABILIFY [Suspect]
     Route: 064

REACTIONS (1)
  - CLEFT LIP AND PALATE [None]
